FAERS Safety Report 5720368-3 (Version None)
Quarter: 2008Q2

REPORT INFORMATION
  Report Type: 
  Country: None (occurrence: None)
  Receive Date: 20080428
  Receipt Date: 20080416
  Transmission Date: 20081010
  Serious: Yes (Other)
  Sender: FDA-Public Use
  Company Number: JP-PFIZER INC-2008034137

PATIENT
  Age: 16 Year
  Sex: Male

DRUGS (4)
  1. METHYLPREDNISOLONE SODIUM SUCCINATE [Suspect]
     Route: 042
  2. PREDNISOLONE [Suspect]
     Indication: NEPHROTIC SYNDROME
  3. MIZORIBINE [Suspect]
  4. CYCLOSPORINE [Suspect]

REACTIONS (1)
  - COLITIS ISCHAEMIC [None]
